FAERS Safety Report 25335262 (Version 1)
Quarter: 2025Q2

REPORT INFORMATION
  Report Type: Spontaneous
  Country: US (occurrence: US)
  Receive Date: 20250520
  Receipt Date: 20250520
  Transmission Date: 20250717
  Serious: Yes (Hospitalization, Other)
  Sender: EPIC PHARM
  Company Number: US-EPICPHARMA-US-2025EPCLIT00565

PATIENT
  Age: 71 Year
  Sex: Male

DRUGS (1)
  1. AMIODARONE HYDROCHLORIDE [Suspect]
     Active Substance: AMIODARONE HYDROCHLORIDE
     Indication: Ventricular tachycardia
     Route: 048

REACTIONS (10)
  - Acute hepatic failure [Recovering/Resolving]
  - Ascites [Recovering/Resolving]
  - Portal hypertension [Recovering/Resolving]
  - Toxicity to various agents [Recovering/Resolving]
  - Abnormal weight gain [Recovering/Resolving]
  - Malaise [Recovering/Resolving]
  - Decreased appetite [Recovering/Resolving]
  - Abdominal distension [Recovering/Resolving]
  - Hepatic cirrhosis [Recovering/Resolving]
  - Drug-induced liver injury [Recovering/Resolving]
